FAERS Safety Report 21018358 (Version 1)
Quarter: 2022Q2

REPORT INFORMATION
  Report Type: Spontaneous
  Country: US (occurrence: None)
  Receive Date: 20220628
  Receipt Date: 20220628
  Transmission Date: 20220721
  Serious: Yes (Disabling)
  Sender: FDA-Public Use
  Company Number: None

PATIENT
  Age: 64 Year
  Sex: Female
  Weight: 68.4 kg

DRUGS (8)
  1. PROHANCE [Suspect]
     Active Substance: GADOTERIDOL
     Indication: Magnetic resonance imaging
  2. OMEPRAZOLE [Concomitant]
     Active Substance: OMEPRAZOLE
  3. ROSUVASTATIN [Concomitant]
     Active Substance: ROSUVASTATIN
  4. SUMATRIPTAN [Concomitant]
     Active Substance: SUMATRIPTAN
  5. COENZYME Q10 [Concomitant]
     Active Substance: DIETARY SUPPLEMENT\UBIDECARENONE
  6. ASPIRIN [Concomitant]
     Active Substance: ASPIRIN
  7. VITAMIN D [Concomitant]
     Active Substance: VITAMIN D NOS
  8. LUBRICATING EYE DROPS [Concomitant]
     Active Substance: CARBOXYMETHYLCELLULOSE SODIUM

REACTIONS (15)
  - Skin discolouration [None]
  - Dysphonia [None]
  - Pharyngeal swelling [None]
  - Dysphagia [None]
  - Pallor [None]
  - Erythema [None]
  - Erythema [None]
  - Disorientation [None]
  - Confusional state [None]
  - Swelling face [None]
  - Bone pain [None]
  - Lacrimation increased [None]
  - Sneezing [None]
  - Paraesthesia [None]
  - Skin disorder [None]

NARRATIVE: CASE EVENT DATE: 20210929
